FAERS Safety Report 4465757-2 (Version None)
Quarter: 2004Q4

REPORT INFORMATION
  Report Type: 
  Country: None (occurrence: None)
  Receive Date: 20041001
  Receipt Date: 20040915
  Transmission Date: 20050328
  Serious: Yes (Hospitalization)
  Sender: FDA-Public Use
  Company Number: 2004AP000762

PATIENT
  Age: 80 Year
  Sex: Female
  Weight: 66 kg

DRUGS (13)
  1. METFORMIN HCL [Suspect]
     Dosage: 500 MG; 3 TIMES A DAY;
  2. CARBAMAZEPINE [Suspect]
     Dosage: 200 MG; TWICE A DAY;
  3. ATORVASTATIN CALCIUM [Suspect]
     Dosage: 20 MG; AT BEDTIME;
  4. VENLAFAXINE HCL [Suspect]
     Dosage: 75 MG; EVERY DAY (DAILY)
  5. ACETAMINOPHEN [Suspect]
     Dosage: 500 MG; WEEKLY
  6. PROCHLORPERAZINE [Concomitant]
  7. . [Concomitant]
  8. NITROGLYCERIN [Concomitant]
  9. DYPIRIDAMOLE/ASPIRI SLOW RELEASE [Concomitant]
  10. FELODIPINE [Concomitant]
  11. ATENOLOL [Concomitant]
  12. RAMIPRIL [Concomitant]
  13. OXAZEPAM [Concomitant]

REACTIONS (8)
  - ANTINUCLEAR ANTIBODY POSITIVE [None]
  - CONFUSIONAL STATE [None]
  - DEMENTIA [None]
  - FALL [None]
  - HEPATIC FAILURE [None]
  - HEPATOTOXICITY [None]
  - LETHARGY [None]
  - MUSCULOSKELETAL PAIN [None]
